FAERS Safety Report 10427831 (Version 2)
Quarter: 2017Q3

REPORT INFORMATION
  Report Type: Spontaneous
  Country: US (occurrence: US)
  Receive Date: 20140903
  Receipt Date: 20170821
  Transmission Date: 20171127
  Serious: Yes (Hospitalization, Disabling, Other)
  Sender: FDA-Public Use
  Company Number: US-009507513-1408USA014279

PATIENT
  Sex: Female

DRUGS (4)
  1. ASCORBIC ACID. [Concomitant]
     Active Substance: ASCORBIC ACID
     Indication: PRODUCT USED FOR UNKNOWN INDICATION
     Dosage: UNK
     Route: 065
     Dates: start: 1997
  2. FOSAMAX [Suspect]
     Active Substance: ALENDRONATE SODIUM
     Dosage: UNK
     Route: 065
     Dates: start: 2008, end: 2012
  3. FOSAMAX [Suspect]
     Active Substance: ALENDRONATE SODIUM
     Indication: BONE DISORDER
     Dosage: UNK
     Route: 065
     Dates: start: 1998, end: 2012
  4. VITAMINS (UNSPECIFIED) [Concomitant]
     Active Substance: VITAMINS
     Indication: PRODUCT USED FOR UNKNOWN INDICATION
     Dosage: UNK
     Route: 065
     Dates: start: 1997

REACTIONS (10)
  - Breast cancer [Unknown]
  - Arthralgia [Unknown]
  - Pulmonary embolism [Unknown]
  - Clavicle fracture [Unknown]
  - Thrombosis [Unknown]
  - Heart rate increased [Unknown]
  - Cataract [Unknown]
  - Cataract [Unknown]
  - Vitamin D deficiency [Unknown]
  - Femur fracture [Unknown]

NARRATIVE: CASE EVENT DATE: 2006
